FAERS Safety Report 11995284 (Version 2)
Quarter: 2016Q1

REPORT INFORMATION
  Report Type: Report from Study
  Country: CA (occurrence: CA)
  Receive Date: 20160203
  Receipt Date: 20160226
  Transmission Date: 20160526
  Serious: Yes (Other)
  Sender: FDA-Public Use
  Company Number: CA-ABBVIE-16K-028-1546749-00

PATIENT
  Age: 51 Year
  Sex: Female
  Weight: 97.6 kg

DRUGS (2)
  1. HUMIRA [Suspect]
     Active Substance: ADALIMUMAB
     Indication: CROHN^S DISEASE
     Route: 058
     Dates: start: 20140422, end: 20160112
  2. HUMIRA [Suspect]
     Active Substance: ADALIMUMAB
     Dosage: DOSE INCREASED
     Route: 058

REACTIONS (5)
  - Hypoacusis [Not Recovered/Not Resolved]
  - Ear infection [Recovered/Resolved with Sequelae]
  - Ear infection [Recovered/Resolved]
  - Gastric disorder [Not Recovered/Not Resolved]
  - Eyelid infection [Recovered/Resolved with Sequelae]

NARRATIVE: CASE EVENT DATE: 201512
